FAERS Safety Report 9018854 (Version 2)
Quarter: 2013Q1

REPORT INFORMATION
  Report Type: Spontaneous
  Country: IT (occurrence: IT)
  Receive Date: 20130118
  Receipt Date: 20130211
  Transmission Date: 20140127
  Serious: Yes (Hospitalization)
  Sender: FDA-Public Use
  Company Number: IT-ASTRAZENECA-2013SE02712

PATIENT
  Age: 24314 Day
  Sex: Male

DRUGS (1)
  1. PREVEX [Suspect]
     Indication: HYPERTENSION
     Route: 048
     Dates: start: 20120910, end: 20121010

REACTIONS (4)
  - Vertigo [Recovering/Resolving]
  - Nausea [Recovering/Resolving]
  - Vomiting [Recovering/Resolving]
  - Dizziness [Unknown]
